FAERS Safety Report 5932029-6 (Version None)
Quarter: 2008Q4

REPORT INFORMATION
  Report Type: 
  Country: None (occurrence: None)
  Receive Date: 20081027
  Receipt Date: 20081024
  Transmission Date: 20090506
  Serious: Yes (Hospitalization)
  Sender: FDA-Public Use
  Company Number: JP-B.I. PHARMACEUTICALS,INC./RIDGEFIELD-2008-BP-14933NB

PATIENT
  Sex: Male
  Weight: 69.5 kg

DRUGS (3)
  1. MICARDIS [Suspect]
     Indication: HYPERTENSION
     Dosage: 40MG
     Route: 048
     Dates: start: 20060710
  2. FLUITRAN [Suspect]
     Indication: HYPERTENSION
     Dosage: 1MG
     Route: 048
     Dates: start: 20060919, end: 20070117
  3. NORVASC [Suspect]
     Indication: HYPERTENSION
     Dosage: 5MG
     Route: 048
     Dates: start: 20060809

REACTIONS (2)
  - CEREBRAL INFARCTION [None]
  - DIZZINESS [None]
